FAERS Safety Report 15626948 (Version 3)
Quarter: 2019Q2

REPORT INFORMATION
  Report Type: Report from Study
  Country: US (occurrence: US)
  Receive Date: 20181116
  Receipt Date: 20190610
  Transmission Date: 20190711
  Serious: Yes (Other)
  Sender: FDA-Public Use
  Company Number: US-ALEXION PHARMACEUTICALS INC.-A201814973

PATIENT
  Sex: Female

DRUGS (1)
  1. SOLIRIS [Suspect]
     Active Substance: ECULIZUMAB
     Indication: PAROXYSMAL NOCTURNAL HAEMOGLOBINURIA
     Route: 065

REACTIONS (7)
  - Haemoglobin decreased [Unknown]
  - Dizziness [Unknown]
  - Haptoglobin decreased [Not Recovered/Not Resolved]
  - Blood count abnormal [Unknown]
  - Drug ineffective [Unknown]
  - Haematocrit decreased [Unknown]
  - Platelet count decreased [Unknown]
